FAERS Safety Report 8985699 (Version 1)
Quarter: 2012Q4

REPORT INFORMATION
  Report Type: 
  Country: DE (occurrence: DE)
  Receive Date: 20121226
  Receipt Date: 20121226
  Transmission Date: 20130627
  Serious: Yes (Other)
  Sender: FDA-Public Use
  Company Number: DE-JNJFOC-20121206871

PATIENT
  Age: 0 Year
  Sex: Male
  Weight: 2.25 kg

DRUGS (2)
  1. RISPERIDON [Suspect]
     Indication: FOETAL EXPOSURE DURING PREGNANCY
     Dosage: 1-0-2, started in 2006
     Route: 064
  2. FOLSAURE [Concomitant]
     Indication: FOETAL EXPOSURE DURING PREGNANCY
     Route: 064

REACTIONS (3)
  - Neonatal respiratory distress syndrome [Recovered/Resolved]
  - Feeding disorder neonatal [Recovered/Resolved]
  - Foetal growth restriction [Unknown]
